FAERS Safety Report 22338591 (Version 1)
Quarter: 2023Q2

REPORT INFORMATION
  Report Type: Report from Study
  Country: US (occurrence: US)
  Receive Date: 20230518
  Receipt Date: 20230518
  Transmission Date: 20230721
  Serious: Yes (Other)
  Sender: FDA-Public Use
  Company Number: US-002147023-NVSC2023US110766

PATIENT
  Sex: Male

DRUGS (5)
  1. GEMCITABINE [Suspect]
     Active Substance: GEMCITABINE
     Indication: Ductal adenocarcinoma of pancreas
     Dosage: UNK UNK, QW (FOR FIRST 2 WEEKS OF 3-WEEK CYCLE)
     Route: 065
     Dates: start: 202211, end: 202212
  2. GEMCITABINE [Suspect]
     Active Substance: GEMCITABINE
     Dosage: UNK, QW ( FOR FIRST 3 WEEKS OF 4-WEEK CYCLE)
     Route: 065
     Dates: start: 202301, end: 202302
  3. DOCETAXEL [Suspect]
     Active Substance: DOCETAXEL
     Indication: Ductal adenocarcinoma of pancreas
     Dosage: UNK, QW ( FOR FIRST 2 WEEKS OF 3-WEEK CYCLE)
     Route: 065
     Dates: start: 202211, end: 202212
  4. CAPECITABINE [Suspect]
     Active Substance: CAPECITABINE
     Indication: Ductal adenocarcinoma of pancreas
     Dosage: UNK, BID
     Route: 065
     Dates: start: 202211, end: 202212
  5. CAPECITABINE [Suspect]
     Active Substance: CAPECITABINE
     Dosage: UNK, BID
     Route: 065
     Dates: start: 202301, end: 202302

REACTIONS (4)
  - Ductal adenocarcinoma of pancreas [Unknown]
  - Malignant neoplasm progression [Unknown]
  - Drug intolerance [Unknown]
  - Product use in unapproved indication [Unknown]

NARRATIVE: CASE EVENT DATE: 20221101
